FAERS Safety Report 5113026-X (Version None)
Quarter: 2006Q3

REPORT INFORMATION
  Report Type: 
  Country: None (occurrence: None)
  Receive Date: 20060920
  Receipt Date: 20060907
  Transmission Date: 20061208
  Serious: Yes (Hospitalization)
  Sender: FDA-Public Use
  Company Number: 2006109596

PATIENT
  Sex: Male

DRUGS (3)
  1. CELEBREX [Suspect]
     Dosage: ORAL
     Route: 048
     Dates: start: 20040914, end: 20041114
  2. BEXTRA [Suspect]
     Dosage: ORAL
     Route: 048
     Dates: start: 20040929, end: 20041029
  3. VIOXX [Suspect]
     Dosage: ORAL
     Route: 048
     Dates: start: 19991201, end: 20030825

REACTIONS (1)
  - CEREBROVASCULAR ACCIDENT [None]
